FAERS Safety Report 19224735 (Version 1)
Quarter: 2021Q2

REPORT INFORMATION
  Report Type: Spontaneous
  Country: US (occurrence: US)
  Receive Date: 20210505
  Receipt Date: 20210505
  Transmission Date: 20210717
  Serious: No
  Sender: FDA-Public Use
  Company Number: US-ROCHE-2649338

PATIENT
  Sex: Female

DRUGS (2)
  1. ESBRIET [Suspect]
     Active Substance: PIRFENIDONE
     Indication: IDIOPATHIC PULMONARY FIBROSIS
     Dosage: 801 MG THREE TIMES A DAY BY MOUTH;ONGOING:YES
     Route: 048
     Dates: start: 20200630
  2. ESBRIET [Suspect]
     Active Substance: PIRFENIDONE
     Dosage: AT BEDTIME
     Route: 048
     Dates: start: 202006

REACTIONS (2)
  - Fatigue [Unknown]
  - Intentional product use issue [Unknown]
